FAERS Safety Report 4582694-3 (Version None)
Quarter: 2005Q1

REPORT INFORMATION
  Report Type: 
  Country: None (occurrence: None)
  Receive Date: 20050215
  Receipt Date: 20050208
  Transmission Date: 20050727
  Serious: Yes (Hospitalization, Other)
  Sender: FDA-Public Use
  Company Number: US-GLAXOSMITHKLINE-A0544450A

PATIENT
  Age: 50 Year
  Sex: Female
  Weight: 75.5 kg

DRUGS (2)
  1. NICORETTE (MINT) [Suspect]
     Indication: SMOKING CESSATION THERAPY
     Route: 002
     Dates: start: 20040101
  2. HYZAAR [Concomitant]

REACTIONS (5)
  - ARTERIAL OCCLUSIVE DISEASE [None]
  - CHEST DISCOMFORT [None]
  - DRUG ABUSER [None]
  - MYOCARDIAL INFARCTION [None]
  - NECK PAIN [None]
